FAERS Safety Report 14453333 (Version 6)
Quarter: 2020Q3

REPORT INFORMATION
  Report Type: Report from Study
  Country: JP (occurrence: JP)
  Receive Date: 20180129
  Receipt Date: 20200904
  Transmission Date: 20201102
  Serious: Yes (Other)
  Sender: FDA-Public Use
  Company Number: JP-VIIV HEALTHCARE LIMITED-JP2017JPN116346

PATIENT
  Age: 42 Year
  Sex: Male

DRUGS (4)
  1. ABACAVIRSULPHATE+DOLUTEGRAVIR+LAMIVUDINE [Suspect]
     Active Substance: ABACAVIR SULFATE\DOLUTEGRAVIR SODIUM\LAMIVUDINE
     Indication: HIV INFECTION
     Dosage: 1 DF, 1D
     Route: 048
     Dates: start: 20151005
  2. BAKTAR [Concomitant]
     Active Substance: SULFAMETHOXAZOLE\TRIMETHOPRIM
     Indication: PNEUMOCYSTIS JIROVECII PNEUMONIA
     Dosage: 960 MG, TID
     Dates: start: 20150826, end: 20150906
  3. ATOVAQUONE. [Suspect]
     Active Substance: ATOVAQUONE
     Indication: PNEUMOCYSTIS JIROVECII PNEUMONIA
     Dosage: 750 MG, BID
     Route: 048
     Dates: start: 20150907, end: 20150913
  4. ATOVAQUONE. [Suspect]
     Active Substance: ATOVAQUONE
     Indication: ANTIFUNGAL PROPHYLAXIS
     Dosage: 750 MG, QD
     Route: 048
     Dates: start: 20150914, end: 20170213

REACTIONS (4)
  - Gastrooesophageal reflux disease [Not Recovered/Not Resolved]
  - Irritable bowel syndrome [Recovered/Resolved]
  - Pruritus [Not Recovered/Not Resolved]
  - Atypical mycobacterial infection [Recovering/Resolving]

NARRATIVE: CASE EVENT DATE: 201511
